FAERS Safety Report 7826771-X (Version None)
Quarter: 2011Q4

REPORT INFORMATION
  Report Type: 
  Country: None (occurrence: None)
  Receive Date: 20111018
  Receipt Date: 20111011
  Transmission Date: 20120403
  Serious: Yes (Other)
  Sender: FDA-Public Use
  Company Number: MFR 2011-007

PATIENT

DRUGS (1)
  1. LEVETIRACETAM [Suspect]
     Indication: EPILEPSY

REACTIONS (6)
  - AGGRESSION [None]
  - MOOD SWINGS [None]
  - SEDATION [None]
  - DEPRESSION [None]
  - LETHARGY [None]
  - IRRITABILITY [None]
